FAERS Safety Report 9922659 (Version 2)
Quarter: 2014Q1

REPORT INFORMATION
  Report Type: Spontaneous
  Country: US (occurrence: US)
  Receive Date: 20140225
  Receipt Date: 20140225
  Transmission Date: 20141002
  Serious: No
  Sender: FDA-Public Use
  Company Number: US-BRISTOL-MYERS SQUIBB COMPANY-19857879

PATIENT
  Age: 14 Month
  Sex: Female

DRUGS (1)
  1. LYSODREN TABS 500 MG [Suspect]
     Indication: ADRENOCORTICAL CARCINOMA
     Route: 048
     Dates: start: 20131124

REACTIONS (1)
  - Wrong technique in drug usage process [Unknown]
